FAERS Safety Report 4314719-4 (Version None)
Quarter: 2004Q1

REPORT INFORMATION
  Report Type: 
  Country: None (occurrence: None)
  Receive Date: 20040310
  Receipt Date: 20040301
  Transmission Date: 20041129
  Serious: Yes (Hospitalization)
  Sender: FDA-Public Use
  Company Number: PHFR2004GB01268

PATIENT
  Age: 73 Year
  Sex: Female

DRUGS (3)
  1. RIVASTIGMINE [Suspect]
     Indication: DEMENTIA
     Dosage: 3 MG, BID
     Route: 048
     Dates: start: 20030620, end: 20040106
  2. HALOPERIDOL [Concomitant]
     Indication: PSYCHOTIC DISORDER
     Dosage: 0.5MG NOCTE
     Route: 048
     Dates: start: 20030311, end: 20031101
  3. ASPIRIN [Concomitant]
     Indication: ANTICOAGULANT THERAPY
     Dosage: 75MG/DAY
     Route: 048
     Dates: start: 20020901

REACTIONS (6)
  - AGGRESSION [None]
  - CEREBRAL ATROPHY [None]
  - CONFUSIONAL STATE [None]
  - DECREASED APPETITE [None]
  - DISORIENTATION [None]
  - PARANOIA [None]
